FAERS Safety Report 13767833 (Version 2)
Quarter: 2017Q3

REPORT INFORMATION
  Report Type: Spontaneous
  Country: CN (occurrence: CN)
  Receive Date: 20170719
  Receipt Date: 20170728
  Transmission Date: 20171127
  Serious: Yes (Death, Other)
  Sender: FDA-Public Use
  Company Number: CN-PFIZER INC-2017308634

PATIENT
  Age: 89 Year
  Sex: Female
  Weight: 55 kg

DRUGS (11)
  1. SOLU-MEDROL [Suspect]
     Active Substance: METHYLPREDNISOLONE SODIUM SUCCINATE
     Dosage: 240 MG, 1X/DAY
     Route: 041
     Dates: start: 20170617, end: 20170619
  2. TIENAM [Suspect]
     Active Substance: CILASTATIN SODIUM\IMIPENEM
     Indication: ANTI-INFECTIVE THERAPY
     Dosage: 0.5 G, 3X/DAY
     Dates: start: 20170515, end: 20170531
  3. SOLU-MEDROL [Suspect]
     Active Substance: METHYLPREDNISOLONE SODIUM SUCCINATE
     Dosage: 40 MG, 1X/DAY
     Route: 041
     Dates: start: 20170625, end: 20170626
  4. MINOCIN [Suspect]
     Active Substance: MINOCYCLINE HYDROCHLORIDE
     Indication: INFECTION
     Dosage: 100 MG, 2X/DAY
     Route: 048
     Dates: start: 20170526, end: 20170531
  5. SOLU-MEDROL [Suspect]
     Active Substance: METHYLPREDNISOLONE SODIUM SUCCINATE
     Dosage: 120 MG, 1X/DAY
     Route: 041
     Dates: start: 20170620, end: 20170621
  6. SOLU-MEDROL [Suspect]
     Active Substance: METHYLPREDNISOLONE SODIUM SUCCINATE
     Dosage: 80 MG, 1X/DAY
     Route: 041
     Dates: start: 20170622, end: 20170624
  7. CEFEPIME [Suspect]
     Active Substance: CEFEPIME HYDROCHLORIDE
     Indication: ANTI-INFECTIVE THERAPY
     Dosage: 2 G, 2X/DAY
     Dates: start: 20170511, end: 20170515
  8. TEICOPLANIN [Suspect]
     Active Substance: TEICOPLANIN
     Indication: ANTI-INFECTIVE THERAPY
     Dosage: UNK
  9. SOLU-MEDROL [Suspect]
     Active Substance: METHYLPREDNISOLONE SODIUM SUCCINATE
     Dosage: 500 MG, 1X/DAY
     Route: 041
     Dates: start: 20170614, end: 20170616
  10. SOLU-MEDROL [Suspect]
     Active Substance: METHYLPREDNISOLONE SODIUM SUCCINATE
     Indication: DRUG REACTION WITH EOSINOPHILIA AND SYSTEMIC SYMPTOMS
     Dosage: 40 MG, 1X/DAY
     Route: 041
     Dates: start: 20170606, end: 20170614
  11. AZTREONAM. [Suspect]
     Active Substance: AZTREONAM
     Indication: ANTI-INFECTIVE THERAPY
     Dosage: 2 G, 2X/DAY
     Route: 041
     Dates: start: 20170429, end: 20170511

REACTIONS (4)
  - Gastrointestinal haemorrhage [Fatal]
  - Rash [Unknown]
  - Drug reaction with eosinophilia and systemic symptoms [Unknown]
  - Drug-induced liver injury [Unknown]

NARRATIVE: CASE EVENT DATE: 2017
